FAERS Safety Report 21861334 (Version 1)
Quarter: 2023Q1

REPORT INFORMATION
  Report Type: Report from Study
  Country: US (occurrence: US)
  Receive Date: 20230113
  Receipt Date: 20230113
  Transmission Date: 20230417
  Serious: No
  Sender: FDA-Public Use
  Company Number: US-ABBVIE-4236757

PATIENT
  Age: 51 Year
  Sex: Female

DRUGS (5)
  1. SKYRIZI [Suspect]
     Active Substance: RISANKIZUMAB-RZAA
     Indication: Psoriasis
     Route: 058
  2. VITAMIN C 1000 mg [Concomitant]
     Indication: Product used for unknown indication
  3. ADVIL 200 MG [Concomitant]
     Indication: Product used for unknown indication
  4. TYLENOL [Concomitant]
     Active Substance: ACETAMINOPHEN
     Indication: Product used for unknown indication
  5. COLLAGEN 1500 PLUS C 500-800 [Concomitant]
     Indication: Product used for unknown indication

REACTIONS (2)
  - Nasopharyngitis [Recovering/Resolving]
  - Lymphadenopathy [Recovering/Resolving]

NARRATIVE: CASE EVENT DATE: 20221205
